FAERS Safety Report 5361819-6 (Version None)
Quarter: 2007Q2

REPORT INFORMATION
  Report Type: 
  Country: None (occurrence: None)
  Receive Date: 20070619
  Receipt Date: 20070605
  Transmission Date: 20071010
  Serious: Yes (Death)
  Sender: FDA-Public Use
  Company Number: US-ELI_LILLY_AND_COMPANY-USA040977804

PATIENT
  Age: 41 Year
  Sex: Female

DRUGS (1)
  1. PROZAC [Suspect]
     Dosage: UNK, UNKNOWN

REACTIONS (3)
  - ACCIDENT [None]
  - HAEMOPTYSIS [None]
  - VOMITING [None]
